FAERS Safety Report 12496879 (Version 3)
Quarter: 2016Q3

REPORT INFORMATION
  Report Type: Spontaneous
  Country: JP (occurrence: JP)
  Receive Date: 20160624
  Receipt Date: 20160726
  Transmission Date: 20161109
  Serious: Yes (Other)
  Sender: FDA-Public Use
  Company Number: JP-AMGEN-JPNSP2016082102

PATIENT
  Age: 69 Year
  Sex: Female

DRUGS (1)
  1. REGPARA [Suspect]
     Active Substance: CINACALCET HYDROCHLORIDE
     Indication: HYPERPARATHYROIDISM SECONDARY
     Dosage: UNK
     Route: 048

REACTIONS (2)
  - Calculus urinary [Unknown]
  - Urine calcium increased [Recovering/Resolving]

NARRATIVE: CASE EVENT DATE: 2015
